FAERS Safety Report 18789265 (Version 1)
Quarter: 2021Q1

REPORT INFORMATION
  Report Type: Spontaneous
  Country: TR (occurrence: TR)
  Receive Date: 20210126
  Receipt Date: 20210126
  Transmission Date: 20210419
  Serious: No
  Sender: FDA-Public Use
  Company Number: TR-SERB S.A.S.-2105826

PATIENT
  Age: 4 Year
  Sex: Male

DRUGS (1)
  1. CYANOKIT [Suspect]
     Active Substance: HYDROXOCOBALAMIN
     Indication: POISONING
     Route: 042

REACTIONS (1)
  - Chromaturia [Recovered/Resolved]
